FAERS Safety Report 4587793-8 (Version None)
Quarter: 2005Q1

REPORT INFORMATION
  Report Type: 
  Country: None (occurrence: None)
  Receive Date: 20050125
  Receipt Date: 20041208
  Transmission Date: 20050727
  Serious: No
  Sender: FDA-Public Use
  Company Number: USA030640087

PATIENT
  Age: 72 Year
  Sex: Female
  Weight: 45 kg

DRUGS (14)
  1. FORTEO [Suspect]
     Indication: FRACTURE
     Dosage: 20 UG DAY
     Dates: start: 20030311
  2. FORTEO [Suspect]
     Indication: OSTEOPOROSIS
     Dosage: 20 UG DAY
     Dates: start: 20030311
  3. MEDROL [Concomitant]
  4. ANTIVERT [Concomitant]
  5. ALDACTONE [Concomitant]
  6. DIURIL (CHLOROTHIAZIDE) [Concomitant]
  7. PARNATE [Concomitant]
  8. ZYLOPRIM [Concomitant]
  9. IMDUR [Concomitant]
  10. LOPRESSOR [Concomitant]
  11. DARVON (DEXTROPROPOXYPHENE NAPSILATE) [Concomitant]
  12. VALIUM [Concomitant]
  13. DEMEROL [Concomitant]
  14. ZANTAC [Concomitant]

REACTIONS (35)
  - ARTHRALGIA [None]
  - ARTHROPATHY [None]
  - CALCULUS URETERIC [None]
  - CATARACT OPERATION [None]
  - CHEST PAIN [None]
  - CHEST WALL PAIN [None]
  - COMPRESSION FRACTURE [None]
  - CONFUSIONAL STATE [None]
  - CONTUSION [None]
  - CREPITATIONS [None]
  - DIPLOPIA [None]
  - DIZZINESS [None]
  - DYSPNOEA [None]
  - ECCHYMOSIS [None]
  - ERYTHEMA [None]
  - FALL [None]
  - HEADACHE [None]
  - HYPERHIDROSIS [None]
  - HYPERSOMNIA [None]
  - INSOMNIA [None]
  - LACERATION [None]
  - MACULAR DEGENERATION [None]
  - MUSCLE SPASMS [None]
  - NAUSEA [None]
  - OEDEMA PERIPHERAL [None]
  - PAIN [None]
  - PAIN IN EXTREMITY [None]
  - PHOTOPSIA [None]
  - RENAL CYST [None]
  - RIB FRACTURE [None]
  - SKIN LESION EXCISION [None]
  - URINARY HESITATION [None]
  - VERTIGO [None]
  - VISION BLURRED [None]
  - VISUAL DISTURBANCE [None]
